FAERS Safety Report 9455571 (Version 2)
Quarter: 2013Q4

REPORT INFORMATION
  Report Type: Spontaneous
  Country: US (occurrence: US)
  Receive Date: 20130813
  Receipt Date: 20131014
  Transmission Date: 20140711
  Serious: No
  Sender: FDA-Public Use
  Company Number: US-PFIZER INC-2013230702

PATIENT
  Age: 64 Year
  Sex: Female
  Weight: 118 kg

DRUGS (20)
  1. ZYVOX [Suspect]
     Indication: WOUND INFECTION STAPHYLOCOCCAL
     Dosage: 600 MG, 2X/DAY
     Route: 048
     Dates: start: 20130803, end: 20130808
  2. ZYVOX [Suspect]
     Indication: OSTEOMYELITIS
  3. COLACE [Concomitant]
     Indication: ABDOMINAL DISCOMFORT
     Dosage: UNK
     Route: 048
  4. ZETIA [Concomitant]
     Route: 048
  5. AMBIEN [Concomitant]
     Route: 048
  6. DIOVAN (VALSARTAN) [Concomitant]
     Route: 048
  7. CLINDAMYCIN PHOSPHATE [Concomitant]
     Dosage: UNK
     Route: 042
  8. FISH OIL [Concomitant]
     Route: 058
  9. LANTUS [Concomitant]
  10. METFORMIN [Concomitant]
     Route: 048
  11. AMITRIPTYLINE [Concomitant]
     Route: 048
  12. OCUVITE [Concomitant]
     Route: 048
  13. PLAVIX [Concomitant]
     Route: 048
  14. ATENOLOL [Concomitant]
     Route: 048
  15. PROTONIX [Concomitant]
     Route: 048
  16. SYNTHROID [Concomitant]
     Route: 048
  17. ASA [Concomitant]
     Route: 048
  18. VITAMIN E [Concomitant]
     Dosage: UNK
  19. VITAMIN D [Concomitant]
     Dosage: UNK
     Route: 048
  20. CALCIUM [Concomitant]
     Dosage: UNK
     Route: 048

REACTIONS (8)
  - Feeling cold [Unknown]
  - Nervousness [Recovered/Resolved]
  - Feeling cold [Recovered/Resolved]
  - Diarrhoea [Recovered/Resolved]
  - Vomiting [Recovered/Resolved]
  - Off label use [Recovered/Resolved]
  - Chills [Recovered/Resolved]
  - Nausea [Recovered/Resolved]
